FAERS Safety Report 6121711-6 (Version None)
Quarter: 2009Q1

REPORT INFORMATION
  Report Type: 
  Country: None (occurrence: None)
  Receive Date: 20090313
  Receipt Date: 20090313
  Transmission Date: 20090719
  Serious: No
  Sender: FDA-Public Use
  Company Number: None

PATIENT
  Age: 80 Year
  Sex: Male
  Weight: 133 kg

DRUGS (1)
  1. TRAMADOL HCL [Suspect]
     Indication: PAIN MANAGEMENT
     Dosage: 50 MG TID PO
     Route: 048
     Dates: start: 20080812, end: 20090311

REACTIONS (6)
  - DYSKINESIA [None]
  - DYSPHEMIA [None]
  - HYPOXIA [None]
  - MYOCLONUS [None]
  - SEROTONIN SYNDROME [None]
  - TREMOR [None]
